APPROVED DRUG PRODUCT: GABAPENTIN
Active Ingredient: GABAPENTIN
Strength: 800MG
Dosage Form/Route: TABLET;ORAL
Application: A076017 | Product #005
Applicant: IVAX PHARMACEUTICALS INC SUB TEVA PHARMACEUTICALS USA
Approved: Apr 29, 2005 | RLD: No | RS: No | Type: DISCN